FAERS Safety Report 8056040-7 (Version None)
Quarter: 2012Q1

REPORT INFORMATION
  Report Type: 
  Country: None (occurrence: None)
  Receive Date: 20120119
  Receipt Date: 20120111
  Transmission Date: 20120608
  Serious: Yes (Other)
  Sender: FDA-Public Use
  Company Number: GB-JNJFOC-20111111629

PATIENT
  Age: 60 Year
  Sex: Female
  Weight: 75.2 kg

DRUGS (3)
  1. STEROIDS NOS [Concomitant]
     Route: 065
  2. METHOTREXATE [Concomitant]
     Route: 065
  3. REMICADE [Suspect]
     Indication: PRODUCT USED FOR UNKNOWN INDICATION
     Route: 042
     Dates: start: 20040701

REACTIONS (1)
  - TIBIA FRACTURE [None]
